FAERS Safety Report 7937228-X (Version None)
Quarter: 2011Q4

REPORT INFORMATION
  Report Type: 
  Country: None (occurrence: None)
  Receive Date: 20111123
  Receipt Date: 20111115
  Transmission Date: 20120403
  Serious: Yes (Hospitalization)
  Sender: FDA-Public Use
  Company Number: AE-GLAXOSMITHKLINE-B0761473A

PATIENT
  Age: 61 Year
  Sex: Female

DRUGS (3)
  1. ANASTROZOLE [Concomitant]
     Dosage: 1ML PER DAY
     Dates: start: 20110720
  2. METFORMIN [Concomitant]
     Route: 065
  3. TYKERB [Suspect]
     Indication: BREAST CANCER METASTATIC
     Dosage: 1250MG PER DAY
     Route: 065

REACTIONS (1)
  - DEEP VEIN THROMBOSIS [None]
